FAERS Safety Report 10396258 (Version 1)
Quarter: 2014Q1

REPORT INFORMATION
  Report Type: Spontaneous
  Country: US (occurrence: None)
  Receive Date: 20130809
  Receipt Date: 20130809
  Transmission Date: 20141002
  Serious: Yes (Hospitalization)
  Sender: FDA-Public Use
  Company Number: MODA20130003

PATIENT
  Age: 60 Year
  Sex: Female
  Weight: 88.45 kg

DRUGS (9)
  1. MODAFINIL [Suspect]
     Indication: SOMNOLENCE
     Route: 048
  2. GABAPENTIN [Concomitant]
  3. LEVOTHYROXINE [Concomitant]
  4. PRAMIPEXOLE [Concomitant]
  5. PLAVIX (CLOPIDOGREL BISULFATE) (CLOPIDOGREL BISULFATE) [Concomitant]
  6. TIZANIDINE [Concomitant]
  7. TOPIRAMATE [Concomitant]
  8. TRAMADOL [Concomitant]
  9. VENLAFAXINE [Concomitant]

REACTIONS (4)
  - Headache [None]
  - Medication error [None]
  - Somnolence [None]
  - Drug ineffective [None]
